FAERS Safety Report 19471434 (Version 1)
Quarter: 2021Q2

REPORT INFORMATION
  Report Type: Spontaneous
  Country: FR (occurrence: FR)
  Receive Date: 20210628
  Receipt Date: 20210628
  Transmission Date: 20210717
  Serious: Yes (Other)
  Sender: FDA-Public Use
  Company Number: NVSC2021FR144914

PATIENT
  Age: 31 Year

DRUGS (1)
  1. CYCLOSPORINE. [Suspect]
     Active Substance: CYCLOSPORINE
     Indication: BIRDSHOT CHORIORETINOPATHY
     Dosage: UNK
     Route: 065
     Dates: start: 2006, end: 2012

REACTIONS (4)
  - Infection [Unknown]
  - Product use in unapproved indication [Unknown]
  - Renal impairment [Unknown]
  - Hypertension [Unknown]
